FAERS Safety Report 13986231 (Version 1)
Quarter: 2017Q3

REPORT INFORMATION
  Report Type: Spontaneous
  Country: US (occurrence: US)
  Receive Date: 20170919
  Receipt Date: 20170919
  Transmission Date: 20171128
  Serious: Yes (Other)
  Sender: FDA-Public Use
  Company Number: US-ASTRAZENECA-2017SE93756

PATIENT
  Sex: Female
  Weight: 54.4 kg

DRUGS (1)
  1. LYNPARZA [Suspect]
     Active Substance: OLAPARIB
     Indication: BREAST CANCER
     Route: 048
     Dates: start: 201704

REACTIONS (4)
  - Blindness unilateral [Unknown]
  - Product use in unapproved indication [Unknown]
  - Optic neuritis [Unknown]
  - Off label use [Unknown]

NARRATIVE: CASE EVENT DATE: 201708
